FAERS Safety Report 20133432 (Version 4)
Quarter: 2023Q1

REPORT INFORMATION
  Report Type: Other
  Country: JP (occurrence: JP)
  Receive Date: 20211201
  Receipt Date: 20230220
  Transmission Date: 20230417
  Serious: Yes (Other)
  Sender: FDA-Public Use
  Company Number: JP-CHUGAI-2021028990

PATIENT
  Age: 78 Year
  Sex: Female
  Weight: 50.1 kg

DRUGS (3)
  1. ENTRECTINIB [Suspect]
     Active Substance: ENTRECTINIB
     Indication: Non-small cell lung cancer
     Route: 048
     Dates: start: 20211116, end: 20211125
  2. ENTRECTINIB [Suspect]
     Active Substance: ENTRECTINIB
     Route: 048
     Dates: start: 20211203, end: 20211206
  3. ENTRECTINIB [Suspect]
     Active Substance: ENTRECTINIB
     Dosage: MOST RECENT DOSE : 16/NOV/2022
     Route: 048
     Dates: start: 20211213

REACTIONS (1)
  - Renal impairment [Recovered/Resolved]

NARRATIVE: CASE EVENT DATE: 20211125
